FAERS Safety Report 7150569-1 (Version None)
Quarter: 2010Q4

REPORT INFORMATION
  Report Type: 
  Country: None (occurrence: None)
  Receive Date: 20101210
  Receipt Date: 20101122
  Transmission Date: 20110411
  Serious: Yes (Hospitalization)
  Sender: FDA-Public Use
  Company Number: US-BIOGENIDEC-2010BI009083

PATIENT
  Sex: Female

DRUGS (1)
  1. TYSABRI [Suspect]
     Indication: MULTIPLE SCLEROSIS
     Route: 042
     Dates: start: 20090413, end: 20090518

REACTIONS (5)
  - COOMBS POSITIVE HAEMOLYTIC ANAEMIA [None]
  - IDIOPATHIC THROMBOCYTOPENIC PURPURA [None]
  - INTERSTITIAL LUNG DISEASE [None]
  - LYMPHADENOPATHY [None]
  - THROMBOCYTOPENIA [None]
